FAERS Safety Report 9509546 (Version 2)
Quarter: 2013Q3

REPORT INFORMATION
  Report Type: Spontaneous
  Country: US (occurrence: US)
  Receive Date: 20130909
  Receipt Date: 20130909
  Transmission Date: 20140515
  Serious: No
  Sender: FDA-Public Use
  Company Number: US-BRISTOL-MYERS SQUIBB COMPANY-17249384

PATIENT
  Sex: Male

DRUGS (2)
  1. ABILIFY TABS [Suspect]
     Indication: DEPRESSION
     Dates: start: 20121227
  2. ABILIFY TABS [Suspect]
     Indication: ANXIETY
     Dates: start: 20121227

REACTIONS (2)
  - Myoclonus [Unknown]
  - Drug ineffective [Unknown]
